FAERS Safety Report 21097772 (Version 2)
Quarter: 2022Q3

REPORT INFORMATION
  Report Type: Report from Study
  Country: IT (occurrence: None)
  Receive Date: 20220719
  Receipt Date: 20220725
  Transmission Date: 20221026
  Serious: Yes (Hospitalization)
  Sender: FDA-Public Use
  Company Number: IT-ROCHE-2688772

PATIENT
  Age: 40 Year
  Sex: Male
  Weight: 77 kg

DRUGS (13)
  1. OBINUTUZUMAB [Suspect]
     Active Substance: OBINUTUZUMAB
     Indication: B-cell lymphoma refractory
     Dosage: MOST RECENT DOSE OF STUDY DRUG PRIOR TO SAE 21-SEP-2020 12:16 PM (END DATE: 4:27 PM)
     Route: 042
     Dates: start: 20200921
  2. METHYLPREDNISOLONE [Concomitant]
     Active Substance: METHYLPREDNISOLONE
     Dates: start: 20200921, end: 20200921
  3. LORATADINE [Concomitant]
     Active Substance: LORATADINE
     Dates: start: 20200921, end: 20200921
  4. ACETAMINOPHEN [Concomitant]
     Active Substance: ACETAMINOPHEN
     Dates: start: 20200921, end: 20200921
  5. ACYCLOVIR [Concomitant]
     Active Substance: ACYCLOVIR
     Indication: Antiviral prophylaxis
  6. PANTOPRAZOLE [Concomitant]
     Active Substance: PANTOPRAZOLE
  7. BACTRIM [Concomitant]
     Active Substance: SULFAMETHOXAZOLE\TRIMETHOPRIM
     Indication: Antibiotic prophylaxis
  8. ALLOPURINOL [Concomitant]
     Active Substance: ALLOPURINOL
     Dates: start: 20200916
  9. LEVETIRACETAM [Concomitant]
     Active Substance: LEVETIRACETAM
     Dates: start: 20200916
  10. ENOXAPARIN SODIUM [Concomitant]
     Active Substance: ENOXAPARIN SODIUM
     Dates: start: 20200916
  11. DOXYCYCLINE [Concomitant]
     Active Substance: DOXYCYCLINE
     Indication: Infection prophylaxis
     Dates: start: 20201003, end: 20201018
  12. FENTANYL [Concomitant]
     Active Substance: FENTANYL
     Indication: Pain
     Dates: start: 20201003
  13. ETOPOSIDE [Concomitant]
     Active Substance: ETOPOSIDE
     Dates: start: 20200512, end: 20210512

REACTIONS (1)
  - Abscess [Recovered/Resolved]

NARRATIVE: CASE EVENT DATE: 20200928
